FAERS Safety Report 6585655-8 (Version None)
Quarter: 2010Q1

REPORT INFORMATION
  Report Type: 
  Country: None (occurrence: None)
  Receive Date: 20100217
  Receipt Date: 20100205
  Transmission Date: 20100710
  Serious: Yes (Hospitalization)
  Sender: FDA-Public Use
  Company Number: FR-PFIZER INC-2010015393

PATIENT
  Age: 54 Year
  Sex: Male

DRUGS (3)
  1. LYRICA [Suspect]
  2. GEMZAR [Suspect]
     Dosage: UNK
     Route: 042
     Dates: start: 20090615
  3. KYTRIL [Suspect]
     Dosage: UNK
     Dates: start: 20090615

REACTIONS (3)
  - PRURITUS [None]
  - RASH MACULO-PAPULAR [None]
  - THROMBOCYTOPENIA [None]
